FAERS Safety Report 6732982-7 (Version None)
Quarter: 2010Q2

REPORT INFORMATION
  Report Type: 
  Country: None (occurrence: None)
  Receive Date: 20100517
  Receipt Date: 20100430
  Transmission Date: 20101027
  Serious: Yes (Hospitalization)
  Sender: FDA-Public Use
  Company Number: JPI-P-010611

PATIENT
  Age: 52 Year
  Sex: Female

DRUGS (1)
  1. XYREM [Suspect]
     Indication: SLEEP APNOEA SYNDROME
     Dosage: ORAL, 10 GM (5 GM, 2 IN 1 D), ORAL
     Route: 048
     Dates: start: 20050101

REACTIONS (2)
  - ACUTE RESPIRATORY DISTRESS SYNDROME [None]
  - INSOMNIA [None]
